FAERS Safety Report 20355307 (Version 1)
Quarter: 2022Q1

REPORT INFORMATION
  Report Type: Spontaneous
  Country: US (occurrence: None)
  Receive Date: 20220119
  Receipt Date: 20220119
  Transmission Date: 20220423
  Serious: Yes (Other)
  Sender: FDA-Public Use
  Company Number: None

PATIENT
  Age: 65 Year
  Sex: Female
  Weight: 134 kg

DRUGS (18)
  1. REMDESIVIR [Suspect]
     Active Substance: REMDESIVIR
     Indication: COVID-19
     Dosage: FREQUENCY : DAILY;?
     Route: 042
     Dates: start: 20220114, end: 20220118
  2. Dexamethasone 6 mg PO daliy [Concomitant]
     Dates: start: 20220114, end: 20220116
  3. aspirin 325 mg PO daily [Concomitant]
     Dates: end: 20220116
  4. calcium carnomate chewable tablet 200 mg elemental, PO TID [Concomitant]
     Dates: start: 20220114
  5. cefazolin 3gm IVPB Q8h x2 doses [Concomitant]
     Dates: start: 20220113, end: 20220113
  6. Ferric gluconate 125 mg IVPB Q48h x2 doses [Concomitant]
     Dates: start: 20220115, end: 20220117
  7. Metoprolol succinate 25 mg PO BID [Concomitant]
  8. Mulitivitamin (Theragran) 1 tab PO daily [Concomitant]
  9. Pantoprazole 40 mg IV BID [Concomitant]
     Dates: start: 20220116, end: 20220118
  10. Piperacillin/tazobactam 4.5 gm IV Q8h over 4 hours [Concomitant]
     Dates: start: 20220113, end: 20220116
  11. Miralax 17gm PO daily [Concomitant]
     Dates: start: 20220116
  12. Pantoprazole 40 mg PO BID [Concomitant]
     Dates: start: 20220118
  13. Naloxegol 25 mg PO daily [Concomitant]
     Dates: start: 20220117
  14. Meropenem 1 gm IV Q8h (over 3 hours) [Concomitant]
     Dates: start: 20220116
  15. lactulose 10 gm PO daily [Concomitant]
     Dates: start: 20220117
  16. Docusate 100mg PO HS [Concomitant]
     Dates: start: 20220116
  17. morphine 2 mg IV Q4h PRN severe pain [Concomitant]
     Dates: start: 20220112, end: 20220116
  18. oxycodone 10 mg PO Q4h PRN severe pain [Concomitant]
     Dates: start: 20220112

REACTIONS (2)
  - Aspartate aminotransferase increased [None]
  - Hyperbilirubinaemia [None]

NARRATIVE: CASE EVENT DATE: 20220118
